FAERS Safety Report 10309861 (Version 4)
Quarter: 2014Q4

REPORT INFORMATION
  Report Type: Report from Study
  Country: JP (occurrence: JP)
  Receive Date: 20140717
  Receipt Date: 20141024
  Transmission Date: 20150528
  Serious: Yes (Other)
  Sender: FDA-Public Use
  Company Number: JP-ROCHE-1435753

PATIENT
  Age: 53 Year
  Sex: Male

DRUGS (4)
  1. PEGINTERFERON ALFA-2A [Suspect]
     Active Substance: PEGINTERFERON ALFA-2A
     Indication: CHRONIC HEPATITIS C
     Route: 058
     Dates: start: 20140310, end: 20140824
  2. SIMEPREVIR [Suspect]
     Active Substance: SIMEPREVIR
     Indication: CHRONIC HEPATITIS C
     Route: 048
     Dates: start: 20140310, end: 20140602
  3. LOXONIN [Concomitant]
     Active Substance: LOXOPROFEN SODIUM
     Dosage: 1 IN 1 AS NECESSARY
     Route: 048
  4. RIBAVIRIN. [Suspect]
     Active Substance: RIBAVIRIN
     Indication: CHRONIC HEPATITIS C
     Route: 048
     Dates: start: 20140310, end: 20140821

REACTIONS (3)
  - Haemolytic anaemia [Recovering/Resolving]
  - White blood cell count decreased [Recovered/Resolved]
  - Red blood cell count decreased [Recovering/Resolving]

NARRATIVE: CASE EVENT DATE: 20140407
